FAERS Safety Report 12174644 (Version 4)
Quarter: 2016Q2

REPORT INFORMATION
  Report Type: Report from Study
  Country: CA (occurrence: CA)
  Receive Date: 20160313
  Receipt Date: 20160429
  Transmission Date: 20160815
  Serious: Yes (Hospitalization)
  Sender: FDA-Public Use
  Company Number: CA-B.I. PHARMACEUTICALS,INC./RIDGEFIELD-2016-BI-12558II

PATIENT
  Age: 80 Year
  Sex: Male
  Weight: 91 kg

DRUGS (5)
  1. SIMVASTATIN. [Concomitant]
     Active Substance: SIMVASTATIN
     Indication: LIPIDS INCREASED
     Dosage: 80 MG
     Route: 048
     Dates: start: 2007
  2. DABIGATRAN [Suspect]
     Active Substance: DABIGATRAN
     Indication: THROMBOSIS PROPHYLAXIS
     Dosage: 300 MG
     Route: 048
     Dates: start: 2012, end: 20160207
  3. ASPIRIN. [Suspect]
     Active Substance: ASPIRIN
     Indication: ANTIPLATELET THERAPY
     Dosage: 81 MG
     Route: 048
     Dates: start: 2007
  4. CILAZAPRIL [Concomitant]
     Active Substance: CILAZAPRIL ANHYDROUS
     Indication: HYPERTENSION
     Dosage: 2.5 MG
     Route: 048
     Dates: start: 2007
  5. DABIGATRAN [Suspect]
     Active Substance: DABIGATRAN
     Dosage: 300 MG
     Route: 048
     Dates: start: 20160209

REACTIONS (2)
  - Haematoma [Recovered/Resolved]
  - Phrenic nerve paralysis [Not Recovered/Not Resolved]

NARRATIVE: CASE EVENT DATE: 20160206
